FAERS Safety Report 20309157 (Version 1)
Quarter: 2022Q1

REPORT INFORMATION
  Report Type: Spontaneous
  Country: US (occurrence: None)
  Receive Date: 20220107
  Receipt Date: 20220107
  Transmission Date: 20220424
  Serious: Yes (Hospitalization)
  Sender: FDA-Public Use
  Company Number: None

PATIENT
  Sex: Male
  Weight: 17.7 kg

DRUGS (6)
  1. CYTARABINE [Suspect]
     Active Substance: CYTARABINE
     Dates: end: 20211115
  2. DAUNORUBICIN [Suspect]
     Active Substance: DAUNORUBICIN
     Dates: end: 20211129
  3. DEXAMETHASONE [Suspect]
     Active Substance: DEXAMETHASONE
     Dates: end: 20211128
  4. METHOTREXATE [Suspect]
     Active Substance: METHOTREXATE
     Dates: end: 20211123
  5. ONCASPAR [Suspect]
     Active Substance: PEGASPARGASE
     Dates: end: 20211118
  6. VINCRISTINE SULFATE [Suspect]
     Active Substance: VINCRISTINE SULFATE
     Dates: end: 20211129

REACTIONS (14)
  - Anal abscess [None]
  - Anorectal cellulitis [None]
  - Gastrointestinal necrosis [None]
  - Ecthyma [None]
  - Culture tissue specimen positive [None]
  - Pseudomonas infection [None]
  - Enterococcal infection [None]
  - Alpha haemolytic streptococcal infection [None]
  - Escherichia infection [None]
  - Bacteroides test positive [None]
  - Eubacterium infection [None]
  - Neutropenia [None]
  - White blood cell count decreased [None]
  - Platelet count decreased [None]

NARRATIVE: CASE EVENT DATE: 20211129
